FAERS Safety Report 13080876 (Version 1)
Quarter: 2017Q1

REPORT INFORMATION
  Report Type: Report from Study
  Country: AR (occurrence: AR)
  Receive Date: 20170103
  Receipt Date: 20170103
  Transmission Date: 20170428
  Serious: Yes (Other)
  Sender: FDA-Public Use
  Company Number: AR-JNJFOC-20170100594

PATIENT
  Sex: Female
  Weight: 62 kg

DRUGS (1)
  1. SIMPONI [Suspect]
     Active Substance: GOLIMUMAB
     Indication: UNEVALUABLE EVENT
     Route: 058
     Dates: start: 20160519

REACTIONS (1)
  - Urinary tract infection [Not Recovered/Not Resolved]
